FAERS Safety Report 19711474 (Version 4)
Quarter: 2022Q1

REPORT INFORMATION
  Report Type: Spontaneous
  Country: PT (occurrence: PT)
  Receive Date: 20210816
  Receipt Date: 20220121
  Transmission Date: 20220424
  Serious: Yes (Hospitalization, Other)
  Sender: FDA-Public Use
  Company Number: None

PATIENT
  Age: 56 Year
  Sex: Female
  Weight: 69 kg

DRUGS (3)
  1. PEGFILGRASTIM [Suspect]
     Active Substance: PEGFILGRASTIM
     Indication: Prophylaxis
     Dosage: LONG ACTING
     Route: 058
     Dates: start: 20210326
  2. DOXORUBICIN [Concomitant]
     Active Substance: DOXORUBICIN
     Indication: HER2 negative breast cancer
     Dosage: UNK UNK, UNKNOWN
     Route: 065
  3. CYCLOPHOSPHAMIDE [Concomitant]
     Active Substance: CYCLOPHOSPHAMIDE
     Indication: HER2 negative breast cancer
     Dosage: UNK, UNKNOWN
     Route: 065

REACTIONS (1)
  - Aortitis [Recovered/Resolved]
